FAERS Safety Report 11162249 (Version 2)
Quarter: 2016Q2

REPORT INFORMATION
  Report Type: Spontaneous
  Country: US (occurrence: US)
  Receive Date: 20150604
  Receipt Date: 20160524
  Transmission Date: 20160815
  Serious: No
  Sender: FDA-Public Use
  Company Number: US-SA-2014SA142497

PATIENT
  Age: 74 Year
  Sex: Female

DRUGS (3)
  1. LANTUS SOLOSTAR [Suspect]
     Active Substance: INSULIN GLARGINE
     Indication: TYPE 2 DIABETES MELLITUS
     Dosage: DOSE:28 UNIT(S)
     Route: 065
     Dates: start: 20140416
  2. SOLOSTAR [Concomitant]
     Active Substance: DEVICE
     Dates: start: 20140416
  3. GLIMEPIRIDE. [Concomitant]
     Active Substance: GLIMEPIRIDE

REACTIONS (6)
  - Peripheral swelling [Unknown]
  - Breast swelling [Unknown]
  - Herpes zoster [Unknown]
  - Condition aggravated [Unknown]
  - Rash erythematous [Unknown]
  - Pain [Unknown]

NARRATIVE: CASE EVENT DATE: 2014
